FAERS Safety Report 13462047 (Version 1)
Quarter: 2017Q2

REPORT INFORMATION
  Report Type: Spontaneous
  Country: US (occurrence: US)
  Receive Date: 20170420
  Receipt Date: 20170420
  Transmission Date: 20170830
  Serious: No
  Sender: FDA-Public Use
  Company Number: None

PATIENT
  Age: 46 Year
  Sex: Male
  Weight: 157.5 kg

DRUGS (5)
  1. TRAZODOND 50MG [Suspect]
     Active Substance: TRAZODONE HYDROCHLORIDE
     Indication: PAIN
     Dosage: ?          QUANTITY:180 TABLET(S);?
     Route: 048
     Dates: start: 20170322, end: 20170414
  2. TRAMADOL HCL [Concomitant]
     Active Substance: TRAMADOL HYDROCHLORIDE
  3. LISINOPRIL. [Concomitant]
     Active Substance: LISINOPRIL
  4. GABAPENTIN. [Concomitant]
     Active Substance: GABAPENTIN
  5. OMEPRAZOLE DR [Concomitant]
     Active Substance: OMEPRAZOLE

REACTIONS (2)
  - Drug dispensing error [None]
  - Wrong drug administered [None]

NARRATIVE: CASE EVENT DATE: 20170322
